FAERS Safety Report 25562782 (Version 4)
Quarter: 2025Q3

REPORT INFORMATION
  Report Type: Spontaneous
  Country: EU (occurrence: EU)
  Receive Date: 20250716
  Receipt Date: 20250911
  Transmission Date: 20251021
  Serious: Yes (Hospitalization, Other)
  Sender: GLAXOSMITHKLINE
  Company Number: None

PATIENT
  Age: 41 Year
  Sex: Male

DRUGS (14)
  1. LAMOTRIGINE [Suspect]
     Active Substance: LAMOTRIGINE
     Indication: Withdrawal syndrome
     Dosage: 400 MG, QD (400 MILLIGRAM)
     Route: 065
  2. PREGABALIN [Suspect]
     Active Substance: PREGABALIN
     Indication: Withdrawal syndrome
     Dosage: 750 MG, QD
     Route: 065
  3. PREGABALIN [Suspect]
     Active Substance: PREGABALIN
     Indication: Psychiatric symptom
     Route: 065
  4. PREGABALIN [Suspect]
     Active Substance: PREGABALIN
     Indication: Epilepsy
     Dosage: 750 MG, QD
     Route: 065
  5. PREGABALIN [Suspect]
     Active Substance: PREGABALIN
     Indication: Anxiety
  6. QUETIAPINE [Suspect]
     Active Substance: QUETIAPINE
     Indication: Withdrawal syndrome
     Dosage: 800 MG, QD (800 MG/24 H)
     Route: 065
  7. HALOPERIDOL [Suspect]
     Active Substance: HALOPERIDOL
     Indication: Withdrawal syndrome
     Dosage: 5 MG, QD (5 MILLIGRAM)
     Route: 065
  8. HALOPERIDOL [Suspect]
     Active Substance: HALOPERIDOL
     Indication: Psychotic symptom
  9. VALPROIC ACID [Suspect]
     Active Substance: VALPROIC ACID
     Indication: Withdrawal syndrome
     Dosage: 1000 MG, QD (1000 MG OF SODIUM VALPROATE + VALPROIC ACID)
     Route: 065
  10. VALPROIC ACID [Suspect]
     Active Substance: VALPROIC ACID
     Indication: Epilepsy
  11. HYDROXYZINE [Suspect]
     Active Substance: HYDROXYZINE HYDROCHLORIDE
     Indication: Epilepsy
     Route: 065
  12. HYDROXYZINE [Suspect]
     Active Substance: HYDROXYZINE HYDROCHLORIDE
     Indication: Psychiatric symptom
  13. LAMOTRIGINE [Concomitant]
     Active Substance: LAMOTRIGINE
     Indication: Withdrawal syndrome
     Dosage: 400 MG, QD
     Route: 065
  14. LAMOTRIGINE [Concomitant]
     Active Substance: LAMOTRIGINE
     Indication: Epilepsy

REACTIONS (9)
  - Drug ineffective [Unknown]
  - Apathy [Recovering/Resolving]
  - Depressed mood [Recovering/Resolving]
  - Anxiety [Unknown]
  - Multiple-drug resistance [Unknown]
  - Condition aggravated [Recovered/Resolved]
  - Psychotic symptom [Recovered/Resolved]
  - Negative thoughts [Recovering/Resolving]
  - Overdose [Unknown]
